FAERS Safety Report 9285924 (Version 1)
Quarter: 2013Q2

REPORT INFORMATION
  Report Type: Spontaneous
  Country: US (occurrence: US)
  Receive Date: 20130513
  Receipt Date: 20130513
  Transmission Date: 20140414
  Serious: No
  Sender: FDA-Public Use
  Company Number: US-PFIZER INC-2013144032

PATIENT
  Sex: Female

DRUGS (1)
  1. ESTRING [Suspect]
     Dosage: UNK
     Route: 067
     Dates: end: 2013

REACTIONS (2)
  - Vulvovaginal mycotic infection [Unknown]
  - Vulvovaginal pain [Unknown]
